FAERS Safety Report 21755183 (Version 1)
Quarter: 2022Q4

REPORT INFORMATION
  Report Type: Spontaneous
  Country: US (occurrence: US)
  Receive Date: 20221220
  Receipt Date: 20221220
  Transmission Date: 20230113
  Serious: No
  Sender: FDA-Public Use
  Company Number: US-RECKITT BENCKISER HEALTHCARE INT LIMITED-RB-98898-2021

PATIENT
  Age: 86 Year
  Sex: Female

DRUGS (2)
  1. DELSYM [Suspect]
     Active Substance: DEXTROMETHORPHAN
     Indication: Cough
     Dosage: 10 MILLIGRAM, SINGLE
     Route: 048
     Dates: start: 20211101, end: 20211101
  2. DELSYM [Suspect]
     Active Substance: DEXTROMETHORPHAN
     Indication: Throat irritation
     Dosage: TOOK LESS THAN HALF THE RECOMMEND DOSE, EVERY NIGHT
     Route: 048
     Dates: start: 20211102, end: 20211104

REACTIONS (2)
  - Underdose [Unknown]
  - Rash [Recovering/Resolving]

NARRATIVE: CASE EVENT DATE: 20211102
